FAERS Safety Report 4394830-2 (Version None)
Quarter: 2004Q3

REPORT INFORMATION
  Report Type: 
  Country: None (occurrence: None)
  Receive Date: 20040707
  Receipt Date: 20040624
  Transmission Date: 20050211
  Serious: Yes (Other)
  Sender: FDA-Public Use
  Company Number: 2004027863

PATIENT
  Age: 3 Year
  Sex: Male
  Weight: 16.7831 kg

DRUGS (3)
  1. ZYRTEC [Suspect]
     Indication: HYPERSENSITIVITY
     Dosage: 5 MG (1 IN 1 D), ORAL
     Route: 048
     Dates: start: 20040401, end: 20040418
  2. MONTELUKAST SODIUM (MONTELUKAST SODIUM) [Concomitant]
  3. FLUTICANSOEN PROPIONATE(FLUTICANSOEN PROPIONATE) [Concomitant]

REACTIONS (4)
  - ALOPECIA [None]
  - AUTOIMMUNE DISORDER [None]
  - DYSGEUSIA [None]
  - SMOOTH MUSCLE ANTIBODY POSITIVE [None]
